FAERS Safety Report 12767461 (Version 7)
Quarter: 2022Q1

REPORT INFORMATION
  Report Type: Spontaneous
  Country: US (occurrence: US)
  Receive Date: 20160921
  Receipt Date: 20220127
  Transmission Date: 20220424
  Serious: Yes (Other)
  Sender: FDA-Public Use
  Company Number: US-PFIZER INC-2016422273

PATIENT
  Age: 74 Year
  Sex: Female
  Weight: 59.864 kg

DRUGS (2)
  1. PREMARIN [Suspect]
     Active Substance: ESTROGENS, CONJUGATED
     Dosage: 1 G INTO THE VAGINA EVERY 3 DAYS AT BEDTIME
     Route: 067
  2. PREMARIN [Suspect]
     Active Substance: ESTROGENS, CONJUGATED
     Dosage: 1 G INTO THE VAGINA EVERY 3 DAYS AT BEDTIME
     Route: 067

REACTIONS (8)
  - Upper limb fracture [Unknown]
  - Fall [Unknown]
  - Limb injury [Unknown]
  - Malaise [Unknown]
  - Rhinitis allergic [Unknown]
  - Limb injury [Unknown]
  - Vulvovaginal dryness [Unknown]
  - Off label use [Unknown]
